FAERS Safety Report 5692841-8 (Version None)
Quarter: 2008Q2

REPORT INFORMATION
  Report Type: 
  Country: None (occurrence: None)
  Receive Date: 20080401
  Receipt Date: 20080315
  Transmission Date: 20081010
  Serious: Yes (Death, Life-Threatening, Hospitalization, Disabling)
  Sender: FDA-Public Use
  Company Number: ADE2008-0149

PATIENT
  Sex: Female
  Weight: 150 kg

DRUGS (9)
  1. SIMVASTATIN [Suspect]
     Dosage: 40MG ORAL
     Route: 048
  2. ERYTHROMYCIN [Suspect]
     Dosage: 500MG 3 X DAY ORAL
     Route: 048
     Dates: start: 20060325
  3. AMITRIPTYLINE HCL [Concomitant]
  4. BUMETANIDE [Concomitant]
  5. DIHYDROCODEINE [Concomitant]
  6. LISINOPRIL [Concomitant]
  7. METFORMIN HCL [Concomitant]
  8. ROSIGLITAZONE [Concomitant]
  9. LEVOTHYROXINE SODIUM [Concomitant]

REACTIONS (9)
  - CHRONIC OBSTRUCTIVE PULMONARY DISEASE [None]
  - CONFUSIONAL STATE [None]
  - DECUBITUS ULCER [None]
  - INFECTED SKIN ULCER [None]
  - MALAISE [None]
  - RENAL FAILURE ACUTE [None]
  - RHABDOMYOLYSIS [None]
  - SEPSIS [None]
  - SKIN NECROSIS [None]
